FAERS Safety Report 7428502-4 (Version None)
Quarter: 2011Q2

REPORT INFORMATION
  Report Type: 
  Country: None (occurrence: None)
  Receive Date: 20110421
  Receipt Date: 20110408
  Transmission Date: 20111010
  Serious: Yes (Hospitalization, Other)
  Sender: FDA-Public Use
  Company Number: PHHY2011DE29752

PATIENT
  Sex: Female

DRUGS (4)
  1. RASILEZ HCT [Suspect]
     Indication: HYPERTENSION
     Dosage: 1 DF, QD
     Route: 048
     Dates: start: 20090227
  2. IDEOS [Suspect]
     Indication: OSTEOPOROSIS
     Dosage: 1 DF, QD
     Dates: start: 20060919
  3. ALENDRONATE SODIUM [Suspect]
     Indication: OSTEOPOROSIS
     Dosage: 1 DF, QD
     Route: 048
     Dates: start: 20061010
  4. ASPIRIN [Suspect]
     Indication: ANGIOPLASTY
     Dosage: 1 DF, QD
     Route: 048
     Dates: start: 20090806

REACTIONS (5)
  - AORTIC ANEURYSM [None]
  - AORTIC VALVE SCLEROSIS [None]
  - ARTERIOSCLEROSIS [None]
  - SYNCOPE [None]
  - PERIPHERAL ARTERIAL OCCLUSIVE DISEASE [None]
